FAERS Safety Report 6770510-0 (Version None)
Quarter: 2010Q2

REPORT INFORMATION
  Report Type: 
  Country: None (occurrence: None)
  Receive Date: 20100610
  Receipt Date: 20100526
  Transmission Date: 20101027
  Serious: Yes (Other)
  Sender: FDA-Public Use
  Company Number: 2010SP029454

PATIENT
  Age: 31 Year
  Sex: Female

DRUGS (3)
  1. IMPLANON [Suspect]
     Indication: DRUG USE FOR UNKNOWN INDICATION
     Dosage: 1 DF;
  2. CLARAVIS [Suspect]
     Indication: DRUG USE FOR UNKNOWN INDICATION
  3. AMNESTEEM [Suspect]
     Indication: DRUG USE FOR UNKNOWN INDICATION

REACTIONS (4)
  - ALOPECIA [None]
  - FATIGUE [None]
  - HEPATIC FUNCTION ABNORMAL [None]
  - METRORRHAGIA [None]
